FAERS Safety Report 23871480 (Version 3)
Quarter: 2024Q2

REPORT INFORMATION
  Report Type: Spontaneous
  Country: US (occurrence: US)
  Receive Date: 20240519
  Receipt Date: 20240621
  Transmission Date: 20240716
  Serious: Yes (Life-Threatening, Hospitalization, Other)
  Sender: FDA-Public Use
  Company Number: US-BIOVITRUM-2024-US-007294

PATIENT
  Age: 17 Year
  Sex: Female
  Weight: 68.8 kg

DRUGS (3)
  1. KINERET [Suspect]
     Active Substance: ANAKINRA
     Indication: Juvenile idiopathic arthritis
     Dosage: TWICE DAILY
     Route: 058
     Dates: start: 20230118
  2. ILARIS [Suspect]
     Active Substance: CANAKINUMAB
     Indication: Product used for unknown indication
     Route: 065
  3. JAKAFI [Suspect]
     Active Substance: RUXOLITINIB
     Indication: Still^s disease
     Dosage: BID
     Route: 048

REACTIONS (7)
  - Dependence on respirator [Recovered/Resolved]
  - Autoinflammatory disease [Unknown]
  - Off label use [Unknown]
  - Insurance issue [Unknown]
  - Product prescribing error [Unknown]
  - Adverse reaction [Unknown]
  - Drug interaction [Unknown]

NARRATIVE: CASE EVENT DATE: 20240101
